FAERS Safety Report 17045023 (Version 1)
Quarter: 2019Q4

REPORT INFORMATION
  Report Type: Spontaneous
  Country: US (occurrence: US)
  Receive Date: 20191118
  Receipt Date: 20191118
  Transmission Date: 20200122
  Serious: No
  Sender: FDA-Public Use
  Company Number: US-SA-2019SA315379

PATIENT
  Age: 36 Year
  Sex: Male

DRUGS (1)
  1. ALLEGRA [Suspect]
     Active Substance: FEXOFENADINE HYDROCHLORIDE
     Indication: RHINITIS
     Dosage: UNK, BID
     Dates: start: 2019

REACTIONS (2)
  - Dehydration [Unknown]
  - Dry throat [Unknown]

NARRATIVE: CASE EVENT DATE: 20191111
